FAERS Safety Report 19881611 (Version 1)
Quarter: 2021Q3

REPORT INFORMATION
  Report Type: Report from Study
  Country: US (occurrence: US)
  Receive Date: 20210924
  Receipt Date: 20210924
  Transmission Date: 20211014
  Serious: Yes (Life-Threatening, Hospitalization)
  Sender: FDA-Public Use
  Company Number: US-GILEAD-2021-0528241

PATIENT
  Age: 52 Year
  Sex: Female
  Weight: 39 kg

DRUGS (5)
  1. SACITUZUMAB GOVITECAN. [Suspect]
     Active Substance: SACITUZUMAB GOVITECAN
     Indication: TRIPLE NEGATIVE BREAST CANCER
     Dosage: 10 MILLIGRAM/KILOGRAM, ON DAYS 1 AND 8 OF A 21 DAY CYCLE
     Route: 042
     Dates: start: 20180228, end: 20180228
  2. PRILOSEC [Concomitant]
     Active Substance: OMEPRAZOLE MAGNESIUM
     Indication: PROPHYLAXIS
     Dosage: 20 MILLIGRAM, DAILY
     Route: 048
     Dates: start: 20170227
  3. SACITUZUMAB GOVITECAN. [Suspect]
     Active Substance: SACITUZUMAB GOVITECAN
     Dosage: 25% REDUCTION OF DOSE
     Route: 042
     Dates: start: 20180404, end: 20180404
  4. DECADRON [DEXAMETHASONE SODIUM SUCCINATE] [Concomitant]
     Active Substance: DEXAMETHASONE SODIUM SUCCINATE
     Indication: PRODUCT USED FOR UNKNOWN INDICATION
     Dosage: 4 MILLIGRAM, DAILY
     Route: 048
     Dates: start: 20171208
  5. COLACE [Concomitant]
     Active Substance: DOCUSATE SODIUM
     Indication: PROPHYLAXIS
     Dosage: 100 MG, BID
     Route: 048
     Dates: start: 20171108

REACTIONS (1)
  - Neutropenia [Recovered/Resolved]

NARRATIVE: CASE EVENT DATE: 20180305
